FAERS Safety Report 4369105-8 (Version None)
Quarter: 2004Q2

REPORT INFORMATION
  Report Type: 
  Country: None (occurrence: None)
  Receive Date: 20040528
  Receipt Date: 20040521
  Transmission Date: 20050107
  Serious: Yes (Other)
  Sender: FDA-Public Use
  Company Number: 2003187679BR

PATIENT
  Sex: Female

DRUGS (2)
  1. DEPO-PROVERA [Suspect]
     Indication: CONTRACEPTION
     Dosage: 150 MG/3 MONTHS FIRST INJECTION, IMTRAMUSCULAR
     Route: 030
     Dates: start: 20030822, end: 20030822
  2. DEPO-PROVERA [Suspect]
     Indication: CONTRACEPTION
     Dosage: 150 MG/3 MONTHS FIRST INJECTION, IMTRAMUSCULAR
     Route: 030
     Dates: start: 20031119, end: 20031119

REACTIONS (5)
  - AMENORRHOEA [None]
  - BREAST MASS [None]
  - HYPERPROLACTINAEMIA [None]
  - MIGRAINE [None]
  - WEIGHT INCREASED [None]
